FAERS Safety Report 5008376-1 (Version None)
Quarter: 2006Q2

REPORT INFORMATION
  Report Type: 
  Country: None (occurrence: None)
  Receive Date: 20060523
  Receipt Date: 20060511
  Transmission Date: 20061013
  Serious: Yes (Hospitalization)
  Sender: FDA-Public Use
  Company Number: 2006SE02684

PATIENT
  Age: 23905 Day
  Sex: Male

DRUGS (5)
  1. ESOMEPRAZOLE [Suspect]
     Indication: PEPTIC ULCER HAEMORRHAGE
     Route: 042
     Dates: start: 20060503, end: 20060503
  2. ESOMEPRAZOLE [Suspect]
     Route: 042
     Dates: start: 20060503, end: 20060506
  3. PARACETAMOL [Concomitant]
     Indication: PAIN
     Route: 042
     Dates: start: 20060503
  4. PRIMPERAN TAB [Concomitant]
     Indication: NAUSEA
     Route: 042
     Dates: start: 20060503, end: 20060505
  5. PANTOPRAZOL [Concomitant]
     Indication: ULCER
     Route: 042
     Dates: start: 20060502, end: 20060503

REACTIONS (1)
  - DUODENAL ULCER HAEMORRHAGE [None]
